FAERS Safety Report 8837688 (Version 2)
Quarter: 2013Q1

REPORT INFORMATION
  Report Type: Spontaneous
  Country: US (occurrence: US)
  Receive Date: 20121012
  Receipt Date: 20121025
  Transmission Date: 20140127
  Serious: Yes (Other)
  Sender: FDA-Public Use
  Company Number: US-ROCHE-1137120

PATIENT
  Sex: Female

DRUGS (15)
  1. RITUXAN [Suspect]
     Indication: IDIOPATHIC THROMBOCYTOPENIC PURPURA
     Route: 065
     Dates: start: 20000627
  2. RITUXAN [Suspect]
     Indication: OFF LABEL USE
     Route: 065
     Dates: start: 20000731
  3. RITUXAN [Suspect]
     Route: 065
     Dates: start: 20010705
  4. PREDNISONE [Concomitant]
     Route: 065
  5. PREDNISONE [Concomitant]
     Route: 065
  6. PREDNISONE [Concomitant]
     Route: 065
  7. PREDNISONE [Concomitant]
     Route: 065
  8. IVIG [Concomitant]
  9. CHLOROPHYLL [Concomitant]
     Dosage: 4 TABLESPOONS
     Route: 065
  10. PEPCID [Concomitant]
     Route: 065
  11. TUMS [Concomitant]
  12. ALOE [Concomitant]
  13. DI-GEL [Concomitant]
  14. TYLENOL [Concomitant]
  15. LORTAB [Concomitant]

REACTIONS (22)
  - Crohn^s disease [Unknown]
  - Tooth abscess [Unknown]
  - Myalgia [Unknown]
  - Nausea [Recovering/Resolving]
  - Vomiting [Unknown]
  - Ecchymosis [Unknown]
  - Contusion [Unknown]
  - Sinusitis [Recovering/Resolving]
  - Cough [Recovered/Resolved]
  - Fatigue [Unknown]
  - Abdominal pain [Unknown]
  - Pain in extremity [Unknown]
  - Hot flush [Unknown]
  - Toothache [Unknown]
  - Arthralgia [Unknown]
  - Lacrimation increased [Recovered/Resolved]
  - Headache [Recovered/Resolved]
  - Gastrooesophageal reflux disease [Unknown]
  - Hyperhidrosis [Unknown]
  - Asthenia [Unknown]
  - Ingrowing nail [Unknown]
  - Tachycardia [Recovered/Resolved]
